FAERS Safety Report 17061728 (Version 1)
Quarter: 2019Q4

REPORT INFORMATION
  Report Type: Spontaneous
  Country: CA (occurrence: CA)
  Receive Date: 20191121
  Receipt Date: 20191121
  Transmission Date: 20200122
  Serious: Yes (Hospitalization)
  Sender: FDA-Public Use
  Company Number: CA-ALLERGAN-1947103US

PATIENT
  Sex: Female

DRUGS (3)
  1. CODEINE [Suspect]
     Active Substance: CODEINE
     Indication: ENDOMETRIOSIS
     Dosage: 30 MG, QD
  2. CODEINE [Suspect]
     Active Substance: CODEINE
     Indication: DYSMENORRHOEA
     Dosage: 15 MG, QD
     Route: 065
  3. BOTOX COSMETIC [Suspect]
     Active Substance: ONABOTULINUMTOXINA
     Indication: SKIN WRINKLING
     Dosage: UNK UNK, SINGLE

REACTIONS (6)
  - Fatigue [Not Recovered/Not Resolved]
  - Decreased appetite [Not Recovered/Not Resolved]
  - Malaise [Not Recovered/Not Resolved]
  - Weight decreased [Not Recovered/Not Resolved]
  - Dizziness [Not Recovered/Not Resolved]
  - Muscular weakness [Not Recovered/Not Resolved]
